FAERS Safety Report 18980345 (Version 1)
Quarter: 2021Q1

REPORT INFORMATION
  Report Type: Spontaneous
  Country: US (occurrence: US)
  Receive Date: 20210306
  Receipt Date: 20210306
  Transmission Date: 20210420
  Serious: No
  Sender: FDA-Public Use
  Company Number: None

PATIENT
  Age: 46 Year
  Sex: Female
  Weight: 108 kg

DRUGS (4)
  1. CONTRAVE [Suspect]
     Active Substance: BUPROPION HYDROCHLORIDE\NALTREXONE HYDROCHLORIDE
     Indication: APPETITE DISORDER
     Dosage: ?
     Route: 048
     Dates: start: 20210223, end: 20210303
  2. NEXIUM [Concomitant]
     Active Substance: ESOMEPRAZOLE MAGNESIUM
  3. CONTRAVE [Suspect]
     Active Substance: BUPROPION HYDROCHLORIDE\NALTREXONE HYDROCHLORIDE
     Indication: WEIGHT DECREASED
     Dosage: ?
     Route: 048
     Dates: start: 20210223, end: 20210303
  4. CPAP MACHINE [Concomitant]

REACTIONS (8)
  - Anxiety [None]
  - Hallucination [None]
  - Tachyphrenia [None]
  - Confusional state [None]
  - Dizziness [None]
  - Nausea [None]
  - Suicidal ideation [None]
  - Fear [None]

NARRATIVE: CASE EVENT DATE: 20210303
